FAERS Safety Report 5747312-7 (Version None)
Quarter: 2008Q2

REPORT INFORMATION
  Report Type: 
  Country: None (occurrence: None)
  Receive Date: 20080523
  Receipt Date: 20080515
  Transmission Date: 20081010
  Serious: Yes (Other)
  Sender: FDA-Public Use
  Company Number: US-JNJFOC-20080400427

PATIENT
  Sex: Female
  Weight: 115.21 kg

DRUGS (4)
  1. DURAGESIC-100 [Suspect]
     Indication: PAIN
     Route: 062
  2. DITROPAN [Suspect]
     Indication: BLADDER DISORDER
     Route: 048
  3. ENALAPRIL MALEATE [Concomitant]
     Indication: BLOOD PRESSURE
     Route: 048
  4. DYAZIDE [Concomitant]
     Indication: BLOOD PRESSURE
     Route: 048

REACTIONS (20)
  - ANORECTAL DISCOMFORT [None]
  - ASTHMA [None]
  - BLOOD CHOLESTEROL INCREASED [None]
  - BURNING SENSATION [None]
  - CARPAL TUNNEL SYNDROME [None]
  - DEPRESSION [None]
  - DIABETES MELLITUS [None]
  - DIABETIC ULCER [None]
  - DIARRHOEA [None]
  - DYSSTASIA [None]
  - FALL [None]
  - INSOMNIA [None]
  - INTERVERTEBRAL DISC CALCIFICATION [None]
  - INTERVERTEBRAL DISC PROTRUSION [None]
  - NERVE INJURY [None]
  - NEUROPATHY PERIPHERAL [None]
  - PARAESTHESIA [None]
  - THORACIC VERTEBRAL FRACTURE [None]
  - THYROID DISORDER [None]
  - WRONG TECHNIQUE IN DRUG USAGE PROCESS [None]
